FAERS Safety Report 9095549 (Version 1)
Quarter: 2013Q1

REPORT INFORMATION
  Report Type: Spontaneous
  Country: GB (occurrence: None)
  Receive Date: 20130124
  Receipt Date: 20130124
  Transmission Date: 20140127
  Serious: Yes (Hospitalization)
  Sender: FDA-Public Use
  Company Number: 1557960

PATIENT
  Age: 73 Year
  Sex: Male
  Weight: 33.2 kg

DRUGS (6)
  1. CALCIUM FOLINATE [Suspect]
     Indication: COLORECTAL CANCER METASTATIC
  2. IRINOTECAN HYDROCHLORIDE [Suspect]
     Indication: COLORECTAL CANCER METASTATIC
  3. OXALIPLATIN [Suspect]
     Indication: CHEMOTHERAPY
     Dosage: (CYCLICAL)
     Route: 042
     Dates: start: 20081230, end: 20090506
  4. FLUOROURACIL [Suspect]
     Indication: COLORECTAL CANCER METASTATIC
  5. CAPECITABINE [Suspect]
     Indication: CHEMOTHERAPY
     Dosage: (CYCLICAL)
     Route: 048
     Dates: start: 20081230, end: 20090506
  6. HALOPERIDOL [Concomitant]

REACTIONS (13)
  - Oedema peripheral [None]
  - Hypoalbuminaemia [None]
  - Urinary retention [None]
  - Nasopharyngitis [None]
  - Peripheral sensory neuropathy [None]
  - Constipation [None]
  - Weight decreased [None]
  - Abdominal pain [None]
  - Lethargy [None]
  - Mucosal inflammation [None]
  - Palmar-plantar erythrodysaesthesia syndrome [None]
  - Vomiting [None]
  - Diarrhoea [None]
